FAERS Safety Report 8166599-7 (Version None)
Quarter: 2012Q1

REPORT INFORMATION
  Report Type: 
  Country: None (occurrence: None)
  Receive Date: 20120227
  Receipt Date: 20110523
  Transmission Date: 20120608
  Serious: No
  Sender: FDA-Public Use
  Company Number: US-MYLANLABS-2011S1010562

PATIENT
  Age: 16 Year
  Sex: Female

DRUGS (3)
  1. ORAL CONTRACEPTIVE NOS [Concomitant]
     Indication: CONTRACEPTION
  2. AMNESTEEM [Suspect]
     Indication: ACNE
  3. AMNESTEEM [Suspect]
     Route: 048
     Dates: end: 20110425

REACTIONS (3)
  - HEADACHE [None]
  - NAUSEA [None]
  - BACK PAIN [None]
